FAERS Safety Report 4547977-1 (Version None)
Quarter: 2004Q4

REPORT INFORMATION
  Report Type: 
  Country: None (occurrence: None)
  Receive Date: 20041220
  Receipt Date: 20041018
  Transmission Date: 20050328
  Serious: Yes (Hospitalization)
  Sender: FDA-Public Use
  Company Number: USA041081468

PATIENT
  Age: 83 Year
  Sex: Female
  Weight: 84 kg

DRUGS (2)
  1. HUMALOG [Suspect]
     Dates: start: 19920101
  2. HUMULIN N [Suspect]
     Dosage: 70U
     Dates: start: 19920101

REACTIONS (12)
  - AMNESIA [None]
  - CHOLECYSTECTOMY [None]
  - CHOLELITHIASIS [None]
  - DYSPHAGIA [None]
  - HYPERSOMNIA [None]
  - INFECTION [None]
  - NERVOUS SYSTEM DISORDER [None]
  - NEUROPATHIC ARTHROPATHY [None]
  - PARKINSONIAN REST TREMOR [None]
  - STENT PLACEMENT [None]
  - URINARY TRACT INFECTION [None]
  - WEIGHT DECREASED [None]
